FAERS Safety Report 24583294 (Version 1)
Quarter: 2024Q4

REPORT INFORMATION
  Report Type: Report from Study
  Country: US (occurrence: US)
  Receive Date: 20241106
  Receipt Date: 20241106
  Transmission Date: 20250115
  Serious: Yes (Hospitalization, Other)
  Sender: TAKEDA
  Company Number: US-TAKEDA-2024TUS087150

PATIENT
  Sex: Female

DRUGS (3)
  1. VEDOLIZUMAB [Suspect]
     Active Substance: VEDOLIZUMAB
     Indication: Crohn^s disease
     Dosage: 300 MILLIGRAM
     Route: 042
  2. HYDRALAZINE HCL [Concomitant]
     Active Substance: HYDRALAZINE HYDROCHLORIDE
     Dosage: UNK
  3. METFORMIN HYDROCHLORIDE [Concomitant]
     Active Substance: METFORMIN HYDROCHLORIDE
     Dosage: UNK

REACTIONS (10)
  - Intestinal obstruction [Unknown]
  - Inappropriate schedule of product administration [None]
  - Heart rate irregular [Unknown]
  - COVID-19 [Unknown]
  - Fall [Unknown]
  - Joint injury [Unknown]
  - Weight increased [Unknown]
  - Mobility decreased [Unknown]
  - Product dose omission issue [Unknown]
  - Illness [Unknown]
